FAERS Safety Report 24031190 (Version 1)
Quarter: 2024Q2

REPORT INFORMATION
  Report Type: Report from Study
  Country: US (occurrence: US)
  Receive Date: 20240629
  Receipt Date: 20240629
  Transmission Date: 20240716
  Serious: Yes (Death, Other)
  Sender: FDA-Public Use
  Company Number: US-ABBVIE-5817849

PATIENT
  Sex: Female

DRUGS (2)
  1. LINZESS [Suspect]
     Active Substance: LINACLOTIDE
     Indication: Constipation
     Dosage: FORM STRENGTH: 72 MICROGRAM
     Route: 048
     Dates: end: 20240617
  2. VALSARTAN [Concomitant]
     Active Substance: VALSARTAN
     Indication: Hypertension

REACTIONS (4)
  - General physical health deterioration [Fatal]
  - Asthenia [Fatal]
  - Bedridden [Fatal]
  - Malnutrition [Fatal]

NARRATIVE: CASE EVENT DATE: 20240101
